FAERS Safety Report 10481647 (Version 1)
Quarter: 2014Q3

REPORT INFORMATION
  Report Type: Spontaneous
  Country: US (occurrence: None)
  Receive Date: 20140908
  Receipt Date: 20140908
  Transmission Date: 20150326
  Serious: Yes (Hospitalization)
  Sender: FDA-Public Use
  Company Number: 393160

PATIENT
  Age: 56 Year
  Sex: Female

DRUGS (2)
  1. VICTOZA [Suspect]
     Active Substance: LIRAGLUTIDE
     Indication: TYPE 1 DIABETES MELLITUS
     Route: 058
     Dates: start: 201311, end: 201311
  2. VICTOZA [Suspect]
     Active Substance: LIRAGLUTIDE
     Indication: DIABETES MELLITUS INADEQUATE CONTROL
     Route: 058
     Dates: start: 201311, end: 201311

REACTIONS (4)
  - Vomiting [None]
  - Diarrhoea [None]
  - Nausea [None]
  - Off label use [None]

NARRATIVE: CASE EVENT DATE: 201311
